FAERS Safety Report 19802280 (Version 1)
Quarter: 2021Q3

REPORT INFORMATION
  Report Type: Spontaneous
  Country: US (occurrence: US)
  Receive Date: 20210903
  Receipt Date: 20210903
  Transmission Date: 20211014
  Serious: Yes (Death)
  Sender: FDA-Public Use
  Company Number: None

PATIENT
  Sex: Male

DRUGS (2)
  1. CLOTRIMAZOLE CREAM 1% [Suspect]
     Active Substance: CLOTRIMAZOLE
     Indication: RASH
     Dosage: ?          OTHER STRENGTH:1%;?DOSE OR AMOUNT: SMALL AMOUNT
     Route: 061
     Dates: start: 20210426, end: 20210714
  2. LISINOPRIL/HCTZ [Suspect]
     Active Substance: HYDROCHLOROTHIAZIDE\LISINOPRIL
     Indication: BLOOD PRESSURE MEASUREMENT
     Dosage: ?          OTHER DOSE:20/25MG;?
     Route: 048
     Dates: start: 20170512, end: 20210714

REACTIONS (1)
  - Death [None]
